FAERS Safety Report 24408771 (Version 1)
Quarter: 2024Q4

REPORT INFORMATION
  Report Type: Spontaneous
  Country: US (occurrence: US)
  Receive Date: 20241007
  Receipt Date: 20241007
  Transmission Date: 20250115
  Serious: No
  Sender: RECKITT BENCKISER
  Company Number: US-INDIVIOR US-INDV-145744-2024

PATIENT
  Sex: Female

DRUGS (5)
  1. SUBOXONE [Suspect]
     Active Substance: BUPRENORPHINE HYDROCHLORIDE\NALOXONE HYDROCHLORIDE
     Indication: Back pain
     Dosage: 8 MILLIGRAM, TWO TO THREE TIMES A DAY
     Route: 065
     Dates: start: 2018, end: 2018
  2. SUBOXONE [Suspect]
     Active Substance: BUPRENORPHINE HYDROCHLORIDE\NALOXONE HYDROCHLORIDE
     Dosage: 8 MILLIGRAM, TWO TO THREE TIMES A DAY
     Route: 065
     Dates: start: 2019, end: 202009
  3. SUBOXONE [Suspect]
     Active Substance: BUPRENORPHINE HYDROCHLORIDE\NALOXONE HYDROCHLORIDE
     Dosage: 8 MILLIGRAM, TWO TO THREE TIMES A DAY
     Route: 065
     Dates: start: 202105
  4. SUBOXONE [Suspect]
     Active Substance: BUPRENORPHINE HYDROCHLORIDE\NALOXONE HYDROCHLORIDE
     Indication: Back pain
     Dosage: 8 MILLIGRAM, TWO TO THREE TIMES A DAY
     Route: 065
     Dates: start: 2018, end: 2019
  5. SUBOXONE [Suspect]
     Active Substance: BUPRENORPHINE HYDROCHLORIDE\NALOXONE HYDROCHLORIDE
     Dosage: 8 MILLIGRAM, TWO TO THREE TIMES A DAY
     Route: 065
     Dates: start: 202009, end: 202105

REACTIONS (6)
  - Off label use [Not Recovered/Not Resolved]
  - Gingival recession [Not Recovered/Not Resolved]
  - Tooth abscess [Not Recovered/Not Resolved]
  - Toothache [Not Recovered/Not Resolved]
  - Inappropriate schedule of product administration [Not Recovered/Not Resolved]
  - Maternal exposure during pregnancy [Recovered/Resolved]

NARRATIVE: CASE EVENT DATE: 20180101
